FAERS Safety Report 16158790 (Version 1)
Quarter: 2019Q2

REPORT INFORMATION
  Report Type: Spontaneous
  Country: ES (occurrence: ES)
  Receive Date: 20190404
  Receipt Date: 20190404
  Transmission Date: 20190711
  Serious: Yes (Other)
  Sender: FDA-Public Use
  Company Number: ES-ALLERGAN-1914794US

PATIENT
  Sex: Female
  Weight: 48.5 kg

DRUGS (2)
  1. OSVICAL D [Concomitant]
     Indication: RADIUS FRACTURE
     Dosage: 600 MG/400 UI, BID
     Route: 065
     Dates: start: 20180926
  2. RISEDRONATE SODIUM - BP [Suspect]
     Active Substance: RISEDRONATE SODIUM
     Indication: RADIUS FRACTURE
     Dosage: 30 MG, QAM
     Route: 048
     Dates: start: 20190301

REACTIONS (8)
  - Off label use [Unknown]
  - Malaise [Unknown]
  - Headache [Unknown]
  - Diarrhoea [Unknown]
  - Erythema [Unknown]
  - Feeling hot [Unknown]
  - Peripheral swelling [Unknown]
  - Pain [Unknown]

NARRATIVE: CASE EVENT DATE: 20190304
